FAERS Safety Report 9557188 (Version 1)
Quarter: 2013Q3

REPORT INFORMATION
  Report Type: Spontaneous
  Country: RU (occurrence: RU)
  Receive Date: 20130926
  Receipt Date: 20130926
  Transmission Date: 20140515
  Serious: Yes (Life-Threatening, Hospitalization)
  Sender: FDA-Public Use
  Company Number: RU-ASTRAZENECA-2013SE71328

PATIENT
  Age: 21706 Day
  Sex: Male
  Weight: 76 kg

DRUGS (8)
  1. BRILINTA [Suspect]
     Indication: ACUTE CORONARY SYNDROME
     Route: 048
     Dates: start: 20130916
  2. ATORVASTATIN [Concomitant]
     Route: 048
  3. CARDIACK [Concomitant]
     Route: 048
  4. OMEZ [Concomitant]
     Route: 048
  5. HEPARIN [Concomitant]
     Route: 041
     Dates: start: 20130916, end: 20130918
  6. EGILOK [Concomitant]
     Route: 048
  7. ENALAPRIL [Concomitant]
     Route: 048
  8. FUROSEMIDE [Concomitant]
     Route: 048

REACTIONS (1)
  - Thrombosis in device [Recovered/Resolved]
